FAERS Safety Report 5207083-X (Version None)
Quarter: 2007Q1

REPORT INFORMATION
  Report Type: 
  Country: None (occurrence: None)
  Receive Date: 20070112
  Receipt Date: 20070105
  Transmission Date: 20070707
  Serious: Yes (Hospitalization)
  Sender: FDA-Public Use
  Company Number: US-JNJFOC-20060202836

PATIENT
  Sex: Female
  Weight: 146.97 kg

DRUGS (2)
  1. ORTHO EVRA [Suspect]
     Indication: DRUG USE FOR UNKNOWN INDICATION
  2. RANITIDINE [Concomitant]
     Indication: PEPTIC ULCER

REACTIONS (20)
  - ABORTION SPONTANEOUS [None]
  - ANAEMIA [None]
  - BIPOLAR DISORDER [None]
  - DEPRESSION [None]
  - GENE MUTATION IDENTIFICATION TEST POSITIVE [None]
  - HAEMORRHAGE [None]
  - HYPERSENSITIVITY [None]
  - INCORRECT DOSE ADMINISTERED [None]
  - INTERNATIONAL NORMALISED RATIO INCREASED [None]
  - INTESTINAL INFARCTION [None]
  - INTESTINAL RESECTION [None]
  - MESENTERIC VEIN THROMBOSIS [None]
  - NEUTROPENIA [None]
  - PNEUMONIA [None]
  - PORTAL VEIN THROMBOSIS [None]
  - PREGNANCY [None]
  - SPLENIC VEIN THROMBOSIS [None]
  - THROMBOSIS [None]
  - URINARY TRACT INFECTION [None]
  - WHITE BLOOD CELLS URINE POSITIVE [None]
